FAERS Safety Report 6707004-4 (Version None)
Quarter: 2010Q2

REPORT INFORMATION
  Report Type: 
  Country: None (occurrence: None)
  Receive Date: 20100430
  Receipt Date: 20100430
  Transmission Date: 20101027
  Serious: Yes (Other)
  Sender: FDA-Public Use
  Company Number: None

PATIENT
  Sex: Male

DRUGS (3)
  1. PROVIGIL [Suspect]
     Indication: ATTENTION DEFICIT/HYPERACTIVITY DISORDER
     Dosage: 200 MG QAM PO
     Route: 048
  2. PROVIGIL [Suspect]
     Indication: PSYCHOMOTOR HYPERACTIVITY
     Dosage: 200 MG QAM PO
     Route: 048
  3. PROVIGIL [Suspect]
     Indication: TIC
     Dosage: 200 MG QAM PO
     Route: 048

REACTIONS (2)
  - DYSKINESIA [None]
  - TIC [None]
